FAERS Safety Report 16005412 (Version 1)
Quarter: 2019Q1

REPORT INFORMATION
  Report Type: Spontaneous
  Country: US (occurrence: US)
  Receive Date: 20190226
  Receipt Date: 20190226
  Transmission Date: 20190418
  Serious: Yes (Disabling)
  Sender: FDA-Public Use
  Company Number: None

PATIENT
  Age: 58 Year
  Sex: Female
  Weight: 67.5 kg

DRUGS (18)
  1. EYEBRIGHT [Concomitant]
  2. AMC BARIATRICS GOL- VIT D3 [Concomitant]
  3. MEGA COD LIVER OIL FERMENTED WITH BUTTER [Concomitant]
  4. BUTTER-GHEE [Concomitant]
  5. ARMOUR THYROID [Concomitant]
     Active Substance: THYROID, PORCINE
  6. COCONUT OIL BP MANAGER [Concomitant]
  7. GOLDENSEAL [Concomitant]
     Active Substance: HERBALS\HOMEOPATHICS\GOLDENSEAL
  8. FLAXSEEDS + OIL [Concomitant]
  9. OLIVE OIL [Concomitant]
     Active Substance: OLIVE OIL
  10. VALERIAN [Concomitant]
     Active Substance: VALERIAN
  11. PROBIOTIC-GOL NOW-DMG [Concomitant]
  12. GOLD-B12 [Concomitant]
  13. GOL- CALCIUM WOMEN^S [Concomitant]
  14. ECHINICEA [Concomitant]
  15. ALFALFA [Concomitant]
     Active Substance: ALFALFA
  16. MSM DIET [Concomitant]
  17. AMLODIPINE [Suspect]
     Active Substance: AMLODIPINE BESYLATE
     Indication: HYPERTENSION
     Dosage: ?          QUANTITY:90 TABLET(S);?
     Route: 048
     Dates: start: 20190116, end: 20190130
  18. SALINE/OINTMENT [Concomitant]

REACTIONS (5)
  - Product physical issue [None]
  - Skin haemorrhage [None]
  - Gastrooesophageal reflux disease [None]
  - Dry skin [None]
  - Product substitution issue [None]

NARRATIVE: CASE EVENT DATE: 20190116
